FAERS Safety Report 5530400-8 (Version None)
Quarter: 2007Q4

REPORT INFORMATION
  Report Type: 
  Country: None (occurrence: None)
  Receive Date: 20071127
  Receipt Date: 20071113
  Transmission Date: 20080405
  Serious: Yes (Other)
  Sender: FDA-Public Use
  Company Number: 02100-JPN-07-0736

PATIENT
  Age: 72 Year
  Sex: Male

DRUGS (8)
  1. CILOSTAZOL [Suspect]
     Indication: ANTIPLATELET THERAPY
     Dosage: 100 MG ORAL
     Route: 048
     Dates: start: 20060101
  2. ASPIRIN [Concomitant]
  3. HEPARIN AND PREPARATIONS [Concomitant]
  4. TISSUE PLASIMNOGEN ACTIVATOR (T-PA) [Concomitant]
  5. PROPOFOL [Concomitant]
  6. TICLOPIDINE HYDROCHLORIDE [Concomitant]
  7. OZAGREL SODIUM [Concomitant]
  8. STEROIDS [Concomitant]

REACTIONS (5)
  - CAROTID ARTERY OCCLUSION [None]
  - DEPRESSED LEVEL OF CONSCIOUSNESS [None]
  - GLOBAL AMNESIA [None]
  - HEMIPARESIS [None]
  - THROMBOSIS IN DEVICE [None]
